FAERS Safety Report 9628050 (Version 1)
Quarter: 2013Q4

REPORT INFORMATION
  Report Type: Spontaneous
  Country: US (occurrence: US)
  Receive Date: 20131016
  Receipt Date: 20131016
  Transmission Date: 20140711
  Serious: Yes (Hospitalization)
  Sender: FDA-Public Use
  Company Number: US-009507513-1310USA004129

PATIENT
  Sex: 0

DRUGS (1)
  1. ISENTRESS [Suspect]
     Dosage: 400 MG, TWICE DAILY
     Route: 048

REACTIONS (2)
  - Adverse event [Unknown]
  - Gastrointestinal tube insertion [Unknown]
